FAERS Safety Report 20262763 (Version 1)
Quarter: 2021Q4

REPORT INFORMATION
  Report Type: Spontaneous
  Country: DE (occurrence: DE)
  Receive Date: 20211231
  Receipt Date: 20211231
  Transmission Date: 20220303
  Serious: Yes (Hospitalization)
  Sender: FDA-Public Use
  Company Number: DE-ADRED-07354-01

PATIENT
  Age: 75 Year
  Sex: Female
  Weight: 80 kg

DRUGS (10)
  1. FUROSEMIDE [Suspect]
     Active Substance: FUROSEMIDE
     Dosage: 80 MILLIGRAM DAILY; 40 MG, 1-1-0-0, AMPOULES,UNIT DOSE:80MILLIGRAM
     Route: 042
  2. LERCANIDIPINE [Suspect]
     Active Substance: LERCANIDIPINE
     Dosage: 10 MILLIGRAM DAILY; 1-0-0-0
     Route: 048
  3. RAMIPRIL [Suspect]
     Active Substance: RAMIPRIL
     Dosage: 10 MILLIGRAM DAILY; 0-0-1-0
     Route: 048
  4. EDOXABAN [Suspect]
     Active Substance: EDOXABAN
     Dosage: 30 MILLIGRAM DAILY; 1-0-0-0
     Route: 048
  5. ALLOPURINOL [Concomitant]
     Active Substance: ALLOPURINOL
     Dosage: 100 MILLIGRAM DAILY; 1-0-0-0
     Route: 048
  6. SIMVASTATIN [Concomitant]
     Active Substance: SIMVASTATIN
     Dosage: 40 MILLIGRAM DAILY; 0-0-1-0
     Route: 048
  7. Umeclidinium bromide / vilanterol [Concomitant]
     Dosage: 1 DOSAGE FORMS DAILY; 55 | 22 UG, 1-0-0-0,POWDER INHALER
     Route: 055
  8. PANTOPRAZOLE SODIUM [Concomitant]
     Active Substance: PANTOPRAZOLE SODIUM
     Dosage: 40 MILLIGRAM DAILY; 1-0-0-0, SUSTAINED-RELEASE TABLETS
     Route: 048
  9. METOPROLOL [Concomitant]
     Active Substance: METOPROLOL
     Dosage: 95 MILLIGRAM DAILY; 1-0-1-0, PROLONGED-RELEASE TABLETS
     Route: 048
  10. ALBUTEROL\IPRATROPIUM BROMIDE [Concomitant]
     Active Substance: ALBUTEROL\IPRATROPIUM BROMIDE
     Dosage: 4 DOSAGE FORMS DAILY; 0.5 | 2.5 MG, 1-1-1-1, AMPOULES
     Route: 055

REACTIONS (6)
  - Cough [Unknown]
  - Dyspnoea [Unknown]
  - Chest pain [Unknown]
  - Pain in extremity [Unknown]
  - Peripheral swelling [Unknown]
  - Haemoptysis [Unknown]
